FAERS Safety Report 6134570-2 (Version None)
Quarter: 2009Q1

REPORT INFORMATION
  Report Type: 
  Country: None (occurrence: None)
  Receive Date: 20090327
  Receipt Date: 20090325
  Transmission Date: 20090719
  Serious: Yes (Death)
  Sender: FDA-Public Use
  Company Number: AU-ASTRAZENECA-2009AP02165

PATIENT
  Age: 64 Year
  Sex: Female

DRUGS (4)
  1. ARIMIDEX [Suspect]
     Indication: BREAST CANCER
     Route: 048
     Dates: start: 20060901
  2. FRUSEMIDE [Concomitant]
  3. RAMIPRIL [Concomitant]
  4. ZANADIP [Concomitant]

REACTIONS (1)
  - DEATH [None]
